FAERS Safety Report 9172361 (Version 2)
Quarter: 2013Q1

REPORT INFORMATION
  Report Type: Report from Study
  Country: GB (occurrence: GB)
  Receive Date: 20130319
  Receipt Date: 20130326
  Transmission Date: 20140127
  Serious: Yes (Hospitalization)
  Sender: FDA-Public Use
  Company Number: GB-ROCHE-1202712

PATIENT
  Age: 61 Year
  Sex: 0

DRUGS (1)
  1. BEVACIZUMAB [Suspect]
     Indication: MALIGNANT MELANOMA
     Dosage: 1 CYCLE (1 INFUSION), TOTAL DOSE: 625 MG PRIOR TO THE ONSET OF THE SAE.
     Route: 065
     Dates: start: 20110926

REACTIONS (2)
  - Cervical radiculopathy [Recovered/Resolved]
  - Spinal decompression [Recovered/Resolved]
